FAERS Safety Report 10653243 (Version 3)
Quarter: 2014Q4

REPORT INFORMATION
  Report Type: Report from Study
  Country: US (occurrence: US)
  Receive Date: 20141215
  Receipt Date: 20141230
  Transmission Date: 20150529
  Serious: Yes (Life-Threatening, Hospitalization, Other)
  Sender: FDA-Public Use
  Company Number: US-ACTELION-A-US2013-90649

PATIENT
  Age: 79 Year
  Sex: Female

DRUGS (21)
  1. PERCOCET [Concomitant]
     Active Substance: ACETAMINOPHEN\OXYCODONE HYDROCHLORIDE
     Dosage: 1 TAB Q4 HRS PRN
     Route: 048
  2. CYMBALTA [Concomitant]
     Active Substance: DULOXETINE HYDROCHLORIDE
     Dosage: 60 MG, UNK
  3. VENTAVIS [Suspect]
     Active Substance: ILOPROST
     Indication: PULMONARY ARTERIAL HYPERTENSION
     Dosage: UNK UNK, Q6HRS
     Route: 055
     Dates: start: 2010
  4. LEVOTHYROXINE [Concomitant]
     Active Substance: LEVOTHYROXINE
     Dosage: 200 MCG DAILY + 250 MCG ON SUN
     Route: 048
  5. DOCUSATE SOD [Concomitant]
     Dosage: 100 MG, BID
     Route: 048
  6. POTASSIUM CHLORIDE. [Concomitant]
     Active Substance: POTASSIUM CHLORIDE
     Dosage: UNK
  7. REVATIO [Concomitant]
     Active Substance: SILDENAFIL CITRATE
     Dosage: 20 MG, TID
     Route: 048
  8. ADVAIR HFA [Concomitant]
     Active Substance: FLUTICASONE PROPIONATE\SALMETEROL XINAFOATE
     Dosage: 250 MCG, Q12HRS
     Route: 055
  9. NEXIUM [Concomitant]
     Active Substance: ESOMEPRAZOLE MAGNESIUM
     Dosage: 40 MG, BID
     Route: 048
  10. MIRALAX [Concomitant]
     Active Substance: POLYETHYLENE GLYCOL 3350
     Dosage: UNK
  11. TRACLEER [Suspect]
     Active Substance: BOSENTAN\BOSENTAN MONOHYDRATE
     Indication: PULMONARY ARTERIAL HYPERTENSION
     Dosage: 125 MG, UNK
     Route: 048
     Dates: start: 2011
  12. COUMADIN [Concomitant]
     Active Substance: WARFARIN SODIUM
     Dosage: 7.5 MG, UNK
     Route: 048
  13. MODAFINIL. [Concomitant]
     Active Substance: MODAFINIL
     Dosage: 100 MG, UNK
     Route: 048
  14. VALSARTAN. [Concomitant]
     Active Substance: VALSARTAN
     Dosage: 80 MG, UNK
     Route: 048
  15. THERAGRAN [Concomitant]
     Active Substance: VITAMINS
     Dosage: UNK
     Route: 048
  16. COREG [Concomitant]
     Active Substance: CARVEDILOL
     Dosage: 6.25 MG, Q12HRS
     Route: 048
  17. DICYCLOMINE [Concomitant]
     Active Substance: DICYCLOMINE HYDROCHLORIDE
     Dosage: 10 MG, TID
     Route: 048
  18. LASIX [Concomitant]
     Active Substance: FUROSEMIDE
     Dosage: 20 MG, UNK
     Route: 048
  19. COLCHICINE. [Concomitant]
     Active Substance: COLCHICINE
     Dosage: 0.06 MG, UNK
     Route: 048
  20. GABAPENTIN. [Concomitant]
     Active Substance: GABAPENTIN
     Dosage: 300 MG,
     Route: 048
  21. ZYRTEC [Concomitant]
     Active Substance: CETIRIZINE HYDROCHLORIDE
     Dosage: 10 MG, UNK
     Route: 048

REACTIONS (14)
  - Secretion discharge [Unknown]
  - Cough [Unknown]
  - Fractured coccyx [Unknown]
  - Fatigue [Unknown]
  - Fluid retention [Unknown]
  - Fall [Unknown]
  - Treatment noncompliance [Unknown]
  - Dyspnoea [Recovering/Resolving]
  - Drug dose omission [Unknown]
  - Fractured sacrum [Unknown]
  - Bronchitis [Unknown]
  - Cardiac failure congestive [Unknown]
  - Hypoxia [Unknown]
  - Pain [Unknown]

NARRATIVE: CASE EVENT DATE: 20131006
